FAERS Safety Report 15664180 (Version 1)
Quarter: 2018Q4

REPORT INFORMATION
  Report Type: Spontaneous
  Country: US (occurrence: US)
  Receive Date: 20181128
  Receipt Date: 20181128
  Transmission Date: 20190205
  Serious: No
  Sender: FDA-Public Use
  Company Number: US-AUROBINDO-AUR-APU-2017-43404

PATIENT
  Sex: Female

DRUGS (3)
  1. LOSARTAN 50MG [Suspect]
     Active Substance: LOSARTAN
     Indication: BLOOD PRESSURE MEASUREMENT
     Dosage: 50 MILLIGRAM
     Route: 065
  2. LOSARTAN 50MG [Suspect]
     Active Substance: LOSARTAN
     Dosage: 100 MILLIGRAM
     Route: 065
  3. LOSARTAN TEVA [Suspect]
     Active Substance: LOSARTAN
     Indication: BLOOD PRESSURE MEASUREMENT
     Dosage: UNK
     Route: 065

REACTIONS (3)
  - Drug ineffective [Unknown]
  - Blood pressure abnormal [Unknown]
  - Blood pressure increased [Unknown]
